FAERS Safety Report 5833857-8 (Version None)
Quarter: 2008Q3

REPORT INFORMATION
  Report Type: 
  Country: None (occurrence: None)
  Receive Date: 20080722
  Receipt Date: 20070718
  Transmission Date: 20090109
  Serious: Yes (Hospitalization)
  Sender: FDA-Public Use
  Company Number: 2007BI015151

PATIENT
  Age: 50 Year
  Sex: Female
  Weight: 51.7101 kg

DRUGS (1)
  1. AVONEX [Suspect]
     Indication: MULTIPLE SCLEROSIS
     Dosage: 15 UG;QW;IM
     Route: 030
     Dates: start: 20061206, end: 20070703

REACTIONS (7)
  - BALANCE DISORDER [None]
  - DIZZINESS [None]
  - FEAR [None]
  - HEADACHE [None]
  - MULTIPLE SCLEROSIS [None]
  - NAUSEA [None]
  - OPTIC NEURITIS [None]
